FAERS Safety Report 4950783-7 (Version None)
Quarter: 2006Q1

REPORT INFORMATION
  Report Type: 
  Country: None (occurrence: None)
  Receive Date: 20060322
  Receipt Date: 20021101
  Transmission Date: 20060701
  Serious: Yes (Hospitalization)
  Sender: FDA-Public Use
  Company Number: DE-BRISTOL-MYERS SQUIBB COMPANY-13312947

PATIENT
  Age: 44 Year
  Sex: Male
  Weight: 50 kg

DRUGS (19)
  1. EFAVIRENZ [Suspect]
     Indication: HIV INFECTION
     Dosage: DOSAGE:0-0-600MG
     Dates: start: 19960904, end: 20020124
  2. VIDEX [Suspect]
     Indication: HIV INFECTION
     Dosage: DOSAGE: 400MG-0-0
     Dates: start: 19971218, end: 19980504
  3. ZERIT [Suspect]
     Indication: HIV INFECTION
     Dosage: DOSAGE: 18-DEC-1997 TO DEC-1998 40MG-0-0; DEC-1998 TO 16-FEB-1999 30MG-0-0
     Dates: start: 19971218, end: 19990216
  4. ZIDOVUDINE [Concomitant]
     Indication: HIV INFECTION
     Dosage: DEC1990-18-DEC-1997 250MG-0-250MG;16-FEB-1999-AUG1999 250MG-0-250MG;12-AUG1999-27-JAN2002 250MG-0-0.
     Dates: start: 19901201
  5. LAMIVUDINE [Concomitant]
     Indication: HIV INFECTION
     Dosage: 28-NOV-1995-18-DEC-1995 150MG-0-150MG; 19-FEB-2002-TO DATE 150MG-0-150MG.
     Dates: start: 19951128
  6. INDINIVIR SULFATE [Concomitant]
     Indication: HIV INFECTION
     Dates: start: 19980504, end: 19980814
  7. ABACAVIR [Concomitant]
     Indication: HIV INFECTION
     Dosage: 18-JUN-1998-AUG-1999 300MG-0-300MG; 12-AUG-1999-27-JAN-2002 300MG-0-300MG.
     Dates: start: 19980618
  8. LOPINAVIR + RITONAVIR [Concomitant]
     Indication: HIV INFECTION
     Dosage: 19-FEB-200? - TO DATE 100/100MG-0-400/100MG
  9. TENOFOVIR [Concomitant]
     Indication: HIV INFECTION
     Dosage: 245MG-0-0
     Dates: start: 20020219
  10. FACTOR VIII [Concomitant]
     Indication: HAEMOPHILIA
     Dates: end: 20020130
  11. CYCLOSPORINE [Concomitant]
     Dosage: 19-FEB-2002, 175MG-0-175MG WITH TROUGH }600NG/ML;3DAYS INTERRUPTION 0-0-25MG,LAST TROUGH 246NG/ML
     Dates: start: 20020219
  12. PREDNISOLONE [Concomitant]
     Dosage: 15MG-1-0-0
  13. URSODEOXYCHOLIC ACID [Concomitant]
     Dosage: 250MG-1-1-1
  14. PANTOPRAZOLE [Concomitant]
  15. PANTOPRAZOLE [Concomitant]
     Dosage: 40MG-0-0-1
  16. FUROSEMIDE [Concomitant]
     Dosage: 20MG-1-1-0
  17. ACETYLCYSTEINE [Concomitant]
     Dosage: 200MG-1-1-1
  18. NADROPARINE [Concomitant]
     Dosage: 0.3ML S.C. 1-0-0
  19. ZALCITABINE [Concomitant]
     Indication: HIV INFECTION
     Dates: start: 19950301, end: 19950101

REACTIONS (16)
  - BLOOD HIV RNA INCREASED [None]
  - BREATH SOUNDS ABNORMAL [None]
  - DEPRESSED MOOD [None]
  - DIABETES MELLITUS NON-INSULIN-DEPENDENT [None]
  - DRUG LEVEL CHANGED [None]
  - DRUG RESISTANCE [None]
  - HEPATIC FUNCTION ABNORMAL [None]
  - HEPATITIS C [None]
  - HEPATITIS CHOLESTATIC [None]
  - JAUNDICE [None]
  - JOINT STIFFNESS [None]
  - LIPOATROPHY [None]
  - LIVER TRANSPLANT [None]
  - OESOPHAGEAL CANDIDIASIS [None]
  - OPPORTUNISTIC INFECTION [None]
  - VIRAL LOAD INCREASED [None]
